FAERS Safety Report 9645813 (Version 3)
Quarter: 2013Q4

REPORT INFORMATION
  Report Type: Report from Study
  Country: PL (occurrence: PL)
  Receive Date: 20131025
  Receipt Date: 20131031
  Transmission Date: 20140711
  Serious: Yes (Hospitalization)
  Sender: FDA-Public Use
  Company Number: PL-TEVA-440290USA

PATIENT
  Age: 67 Year
  Sex: Female
  Weight: 62 kg

DRUGS (7)
  1. BENDAMUSTINE [Suspect]
     Indication: MANTLE CELL LYMPHOMA
     Dosage: UID/QD, ON DAY 1 AND 2 EVERY 28 DAYS
     Route: 042
     Dates: start: 20131009, end: 20131010
  2. RITUXIMAB [Suspect]
     Indication: MANTLE CELL LYMPHOMA
     Dosage: ONCE EVERY 28 DAYS.
     Route: 042
     Dates: start: 20131009
  3. IBRUTINIB [Suspect]
     Indication: MANTLE CELL LYMPHOMA
     Dosage: 560 MILLIGRAM DAILY; STUDY MEDICATION
     Route: 048
     Dates: start: 20131009, end: 20131010
  4. IBRUTINIB [Suspect]
     Route: 048
     Dates: start: 20131014
  5. CLEMASTINE [Concomitant]
     Indication: PREMEDICATION
     Route: 042
     Dates: start: 20131009
  6. PARACETAMOL [Concomitant]
     Indication: PREMEDICATION
     Dosage: 1000 MILLIGRAM DAILY;
     Route: 048
     Dates: start: 20131009
  7. HYDROCORTISONE [Concomitant]
     Indication: PREMEDICATION
     Dosage: 100 MILLIGRAM DAILY;
     Route: 042
     Dates: start: 20131009

REACTIONS (3)
  - Convulsion [Recovered/Resolved]
  - Loss of consciousness [Recovered/Resolved]
  - Vomiting [Recovered/Resolved]
